FAERS Safety Report 15547755 (Version 1)
Quarter: 2018Q4

REPORT INFORMATION
  Report Type: Spontaneous
  Country: CN (occurrence: CN)
  Receive Date: 20181024
  Receipt Date: 20181024
  Transmission Date: 20190205
  Serious: Yes (Life-Threatening)
  Sender: FDA-Public Use
  Company Number: CN-FRESENIUS KABI-FK201810971

PATIENT
  Age: 4 Year
  Sex: Male

DRUGS (5)
  1. ARGATROBAN (MAUFACTURER UNKNOWN) [Suspect]
     Active Substance: ARGATROBAN
     Indication: PROPHYLAXIS
  2. HEPARIN [Concomitant]
     Active Substance: HEPARIN SODIUM
     Indication: PRODUCT USED FOR UNKNOWN INDICATION
     Route: 065
  3. WARFARIN SODIUM. [Concomitant]
     Active Substance: WARFARIN SODIUM
     Indication: PRODUCT USED FOR UNKNOWN INDICATION
     Route: 065
  4. NO DRUG NAME [Concomitant]
     Indication: PRODUCT USED FOR UNKNOWN INDICATION
     Route: 065
  5. ARGATROBAN (MAUFACTURER UNKNOWN) [Suspect]
     Active Substance: ARGATROBAN
     Indication: ANTICOAGULANT THERAPY
     Route: 065

REACTIONS (2)
  - Anaphylactic shock [Unknown]
  - Disseminated intravascular coagulation [Unknown]
